APPROVED DRUG PRODUCT: RANITIDINE HYDROCHLORIDE
Active Ingredient: RANITIDINE HYDROCHLORIDE
Strength: EQ 300MG BASE
Dosage Form/Route: CAPSULE;ORAL
Application: A075564 | Product #002
Applicant: PHARMOBEDIENT CONSULTING LLC
Approved: Oct 27, 2000 | RLD: No | RS: No | Type: DISCN